FAERS Safety Report 21826198 (Version 1)
Quarter: 2023Q1

REPORT INFORMATION
  Report Type: Spontaneous
  Country: US (occurrence: US)
  Receive Date: 20230106
  Receipt Date: 20230106
  Transmission Date: 20230418
  Serious: No
  Sender: FDA-Public Use
  Company Number: US-drreddys-SPO/USA/22/0158631

PATIENT
  Age: 78 Year
  Sex: Male

DRUGS (17)
  1. LENALIDOMIDE [Suspect]
     Active Substance: LENALIDOMIDE
     Indication: Plasma cell myeloma
     Dosage: TAKE 1 CAPSULE BY MOUTH EVERY DAY FOR 3 WEEKS THEN 1 WEEK OFF
     Route: 048
     Dates: start: 20220505
  2. LENALIDOMIDE [Suspect]
     Active Substance: LENALIDOMIDE
     Dosage: DOSE DECREASED FROM 10MG TO 5MG
  3. ADVAIR DISKU AEP [Concomitant]
     Indication: Product used for unknown indication
     Dosage: 500-50MC
  4. ALBUTEROL SU AER [Concomitant]
     Indication: Product used for unknown indication
     Dosage: 108 (90
  5. ALBUTEROL SU [Concomitant]
     Indication: Product used for unknown indication
     Dosage: 2MG/5ML
  6. AMIODARONE H [Concomitant]
     Indication: Product used for unknown indication
  7. AMLODIPINE B [Concomitant]
     Indication: Product used for unknown indication
     Dosage: 5-20MG
  8. ATORVASTATIN CALCIUM [Concomitant]
     Active Substance: ATORVASTATIN CALCIUM
     Indication: Product used for unknown indication
  9. VITAMIN B COMPLEX [Concomitant]
     Active Substance: CYANOCOBALAMIN\DEXPANTHENOL\NIACINAMIDE\PYRIDOXINE HYDROCHLORIDE\RIBOFLAVIN 5^-PHOSPHATE SODIUM\THIA
     Indication: Product used for unknown indication
  10. CALCIUM + D CHE [Concomitant]
     Indication: Product used for unknown indication
     Dosage: 500-1000M
  11. CHLORHEXIDINE [Concomitant]
     Active Substance: CHLORHEXIDINE
     Indication: Product used for unknown indication
  12. DICLOFENAC E PTC [Concomitant]
     Indication: Product used for unknown indication
  13. DOXAZOSIN [Concomitant]
     Active Substance: DOXAZOSIN MESYLATE
     Indication: Product used for unknown indication
  14. TRIAMCINOLON CRE [Concomitant]
     Indication: Product used for unknown indication
  15. ACYCLOVIR [Concomitant]
     Active Substance: ACYCLOVIR
     Indication: Product used for unknown indication
  16. DEXAMETHASONE [Concomitant]
     Active Substance: DEXAMETHASONE
     Indication: Product used for unknown indication
  17. ELIQUIS [Concomitant]
     Active Substance: APIXABAN
     Indication: Product used for unknown indication

REACTIONS (2)
  - Memory impairment [Recovered/Resolved]
  - Product dose omission issue [Unknown]
